FAERS Safety Report 15770209 (Version 2)
Quarter: 2019Q1

REPORT INFORMATION
  Report Type: Spontaneous
  Country: US (occurrence: US)
  Receive Date: 20181228
  Receipt Date: 20190329
  Transmission Date: 20190417
  Serious: Yes (Other)
  Sender: FDA-Public Use
  Company Number: US-PFIZER INC-2018533087

PATIENT
  Age: 61 Year
  Sex: Female

DRUGS (1)
  1. XELJANZ XR [Suspect]
     Active Substance: TOFACITINIB CITRATE
     Dosage: 11 MG, UNK
     Dates: start: 201809, end: 2019

REACTIONS (6)
  - Muscle rupture [Unknown]
  - Hot flush [Unknown]
  - Fall [Unknown]
  - Contusion [Unknown]
  - Joint swelling [Unknown]
  - Blood creatine increased [Unknown]
